FAERS Safety Report 10425416 (Version 1)
Quarter: 2014Q3

REPORT INFORMATION
  Report Type: Report from Study
  Country: BR (occurrence: BR)
  Receive Date: 20140902
  Receipt Date: 20140902
  Transmission Date: 20150326
  Serious: Yes (Death, Other)
  Sender: FDA-Public Use
  Company Number: PHHY2014BR110415

PATIENT
  Sex: Male
  Weight: 89 kg

DRUGS (2)
  1. DRUG THERAPY NOS [Suspect]
     Active Substance: UNSPECIFIED INGREDIENT
     Indication: EMPHYSEMA
     Dosage: UNK UKN, UNK
     Route: 048
  2. FORASEQ [Suspect]
     Active Substance: BUDESONIDE\FORMOTEROL FUMARATE
     Dosage: UNK UKN, UNK

REACTIONS (1)
  - Pneumonia [Fatal]
